FAERS Safety Report 17082642 (Version 1)
Quarter: 2019Q4

REPORT INFORMATION
  Report Type: Spontaneous
  Country: FR (occurrence: FR)
  Receive Date: 20191127
  Receipt Date: 20191127
  Transmission Date: 20200122
  Serious: Yes (Other)
  Sender: FDA-Public Use
  Company Number: FR-MYLANLABS-2019M1115145

PATIENT
  Age: 43 Year
  Sex: Male

DRUGS (4)
  1. VALACICLOVIR [Suspect]
     Active Substance: VALACYCLOVIR HYDROCHLORIDE
     Indication: HERPES OPHTHALMIC
     Dosage: UNK
     Route: 065
  2. GANCICLOVIR. [Suspect]
     Active Substance: GANCICLOVIR
     Indication: HERPES OPHTHALMIC
     Dosage: UNK
     Route: 061
  3. ACICLOVIR [Suspect]
     Active Substance: ACYCLOVIR
     Indication: HERPES OPHTHALMIC
     Dosage: UNK
     Route: 048
  4. TRIFLURIDINE. [Suspect]
     Active Substance: TRIFLURIDINE
     Indication: HERPES OPHTHALMIC
     Dosage: UNK
     Route: 061

REACTIONS (1)
  - Drug resistance [Unknown]
